FAERS Safety Report 7305522-1 (Version None)
Quarter: 2011Q1

REPORT INFORMATION
  Report Type: 
  Country: None (occurrence: None)
  Receive Date: 20110222
  Receipt Date: 20110218
  Transmission Date: 20110831
  Serious: Yes (Death)
  Sender: FDA-Public Use
  Company Number: JP-ASTRAZENECA-2010SE50005

PATIENT
  Age: 30592 Day
  Sex: Male
  Weight: 47 kg

DRUGS (46)
  1. SLOW-K [Concomitant]
     Indication: HYPOKALAEMIA
     Route: 048
     Dates: start: 20100805, end: 20100823
  2. HYPEN [Concomitant]
     Indication: BACK PAIN
     Route: 048
     Dates: start: 20100811, end: 20101006
  3. VITAMEDIN [Concomitant]
     Route: 042
     Dates: start: 20100823, end: 20100831
  4. PICILLIBACTA [Concomitant]
     Indication: PNEUMONIA
     Route: 042
     Dates: start: 20100823, end: 20100831
  5. LAC-B [Concomitant]
     Indication: DIARRHOEA
     Route: 048
     Dates: start: 20100908, end: 20100910
  6. LASIX [Concomitant]
     Route: 048
     Dates: start: 20100926, end: 20100928
  7. RASENAZOLIN [Concomitant]
     Route: 042
     Dates: start: 20100816, end: 20100817
  8. RISPERDAL [Concomitant]
     Indication: DELIRIUM
     Route: 048
     Dates: start: 20100820, end: 20100820
  9. MUCOSTA [Concomitant]
     Indication: GASTRITIS
     Route: 062
     Dates: start: 20100811, end: 20101006
  10. LAXOBERON [Concomitant]
     Indication: CONSTIPATION
     Route: 048
     Dates: start: 20100814, end: 20100820
  11. OXYCONTIN [Concomitant]
     Indication: CANCER PAIN
     Route: 048
     Dates: start: 20100814, end: 20100817
  12. OXYCONTIN [Concomitant]
     Route: 048
     Dates: start: 20100823, end: 20100828
  13. OXINORM [Concomitant]
     Route: 048
     Dates: start: 20100817, end: 20100822
  14. OXINORM [Concomitant]
     Route: 048
     Dates: start: 20100822, end: 20100828
  15. LASIX [Concomitant]
     Indication: CARDIAC FAILURE
     Route: 048
     Dates: start: 20100815, end: 20100819
  16. LASIX [Concomitant]
     Indication: PULMONARY CONGESTION
     Route: 048
     Dates: start: 20100815, end: 20100819
  17. NOVAMIN [Concomitant]
     Indication: NAUSEA
     Route: 048
     Dates: start: 20100821, end: 20100902
  18. MUCOSOLVAN [Concomitant]
     Indication: BRONCHITIS
     Route: 048
     Dates: start: 20100917
  19. SEFIROM [Concomitant]
     Route: 042
     Dates: start: 20100927, end: 20101001
  20. ZOLADEX [Suspect]
     Indication: PROSTATE CANCER
     Route: 058
     Dates: start: 20100910
  21. PURSENNID [Concomitant]
     Indication: CONSTIPATION
     Route: 062
     Dates: start: 20100809, end: 20100820
  22. OXYCONTIN [Concomitant]
     Indication: BACK PAIN
     Route: 048
     Dates: start: 20100814, end: 20100817
  23. OXYCONTIN [Concomitant]
     Route: 048
     Dates: start: 20100817, end: 20100820
  24. OXYCONTIN [Concomitant]
     Route: 048
     Dates: start: 20100817, end: 20100820
  25. OXYCONTIN [Concomitant]
     Route: 048
     Dates: start: 20100820, end: 20100823
  26. OXINORM [Concomitant]
     Route: 048
     Dates: start: 20100817, end: 20100822
  27. ALDACTONE [Concomitant]
     Indication: CARDIAC FAILURE
     Route: 048
     Dates: start: 20100815, end: 20100820
  28. DUROTEP [Concomitant]
     Indication: CANCER PAIN
     Route: 062
     Dates: start: 20100828, end: 20100922
  29. DUROTEP [Concomitant]
     Route: 062
     Dates: start: 20100916, end: 20100922
  30. MAGLAX [Concomitant]
     Indication: CONSTIPATION
     Route: 048
     Dates: start: 20100813, end: 20101006
  31. OXINORM [Concomitant]
     Indication: BACK PAIN
     Route: 048
     Dates: start: 20100815, end: 20100817
  32. OXINORM [Concomitant]
     Route: 048
     Dates: start: 20100822, end: 20100828
  33. ZOMETA [Concomitant]
     Indication: HYPERCALCAEMIA
     Route: 042
     Dates: start: 20100818, end: 20100818
  34. SEFIROM [Concomitant]
     Indication: PNEUMONIA
     Route: 042
     Dates: start: 20100925, end: 20100927
  35. CASODEX [Suspect]
     Indication: PROSTATE CANCER
     Route: 048
     Dates: start: 20100815, end: 20101006
  36. PICILLIBACTA [Concomitant]
     Route: 042
     Dates: start: 20100922, end: 20100924
  37. DUROTEP [Concomitant]
     Route: 062
     Dates: start: 20100922
  38. MUCODYNE [Concomitant]
     Indication: BRONCHITIS
     Route: 048
     Dates: start: 20100917
  39. MS REISHIPPU [Concomitant]
     Indication: BACK PAIN
     Route: 062
     Dates: start: 20100806, end: 20100813
  40. OXYCONTIN [Concomitant]
     Route: 048
     Dates: start: 20100820, end: 20100823
  41. OXYCONTIN [Concomitant]
     Route: 048
     Dates: start: 20100823, end: 20100828
  42. BISOLVON [Concomitant]
     Indication: BRONCHITIS
     Route: 042
     Dates: start: 20100923, end: 20100924
  43. OXINORM [Concomitant]
     Indication: CANCER PAIN
     Route: 048
     Dates: start: 20100815, end: 20100817
  44. LASIX [Concomitant]
     Route: 048
     Dates: start: 20100926, end: 20100928
  45. TELEMINSOFT [Concomitant]
     Indication: CONSTIPATION
     Route: 054
     Dates: start: 20100823, end: 20100823
  46. ANPEC [Concomitant]
     Indication: CANCER PAIN
     Route: 054
     Dates: start: 20100828, end: 20101005

REACTIONS (1)
  - INTERSTITIAL LUNG DISEASE [None]
